FAERS Safety Report 11090506 (Version 3)
Quarter: 2015Q2

REPORT INFORMATION
  Report Type: Spontaneous
  Country: DE (occurrence: DE)
  Receive Date: 20150505
  Receipt Date: 20150601
  Transmission Date: 20150821
  Serious: Yes (Death, Life-Threatening)
  Sender: FDA-Public Use
  Company Number: DE-PFIZER INC-2015152361

PATIENT
  Age: 57 Year
  Sex: Male
  Weight: 55 kg

DRUGS (9)
  1. CEFTRIAXON [Concomitant]
     Active Substance: CEFTRIAXONE
     Dosage: FROM 2ND DAY - UNK
     Route: 065
  2. VANCOMYCIN [Concomitant]
     Active Substance: VANCOMYCIN
     Dosage: FROM 2ND DAY - UNK
     Route: 065
  3. METAMIZOL [Concomitant]
     Active Substance: METAMIZOLE SODIUM
     Dosage: 4 G, UNK
     Route: 065
  4. FONDAPARINUX [Concomitant]
     Active Substance: FONDAPARINUX
     Dosage: 7.5 MG, UNK
     Route: 065
     Dates: start: 20150307, end: 20150413
  5. ASPIRIN. [Concomitant]
     Active Substance: ASPIRIN
     Dosage: UNK
     Dates: start: 20150307, end: 20150404
  6. BISOPROLOL [Concomitant]
     Active Substance: BISOPROLOL
     Dosage: 5 MG, UNK
     Route: 065
  7. MELPERON [Concomitant]
     Active Substance: MELPERONE
     Dosage: 5 MG, UNK
     Route: 065
  8. ARGATRA [Suspect]
     Active Substance: ARGATROBAN
     Indication: HEPARIN-INDUCED THROMBOCYTOPENIA
     Dosage: INTIAL BOLUS 8 MG (3 MIN), 6 MG/HR; BOLUS 2 MG, 10 MG/HR; 15MG/HR; 10MG/HR; 8MG/HR (1 IN 1 HR)
     Route: 040
     Dates: start: 20150415, end: 20150415
  9. PANTOZOL [Concomitant]
     Active Substance: PANTOPRAZOLE SODIUM
     Dosage: 80 MG, 1X/DAY
     Route: 065

REACTIONS (1)
  - Haemorrhage [Fatal]

NARRATIVE: CASE EVENT DATE: 20150415
